FAERS Safety Report 13654211 (Version 1)
Quarter: 2017Q2

REPORT INFORMATION
  Report Type: Report from Study
  Country: US (occurrence: US)
  Receive Date: 20170614
  Receipt Date: 20170614
  Transmission Date: 20170830
  Serious: Yes (Other)
  Sender: FDA-Public Use
  Company Number: US-UCBSA-2017021147

PATIENT
  Age: 44 Year
  Sex: Female

DRUGS (1)
  1. CERTOLIZUMAB PEGOL [Suspect]
     Active Substance: CERTOLIZUMAB PEGOL
     Indication: RHEUMATOID ARTHRITIS
     Dosage: 200 MG, EV 2 WEEKS(QOW)
     Dates: start: 20170421

REACTIONS (3)
  - Injection site bruising [Recovered/Resolved]
  - Appendicectomy [Not Recovered/Not Resolved]
  - Hysterectomy [Not Recovered/Not Resolved]

NARRATIVE: CASE EVENT DATE: 20170519
